FAERS Safety Report 8801515 (Version 15)
Quarter: 2013Q3

REPORT INFORMATION
  Report Type: Report from Study
  Country: US (occurrence: US)
  Receive Date: 20120921
  Receipt Date: 20130802
  Transmission Date: 20140515
  Serious: Yes (Hospitalization)
  Sender: FDA-Public Use
  Company Number: US-JNJFOC-20120908261

PATIENT
  Age: 14 Year
  Sex: Female
  Weight: 46.1 kg

DRUGS (19)
  1. ONDANSETRON [Concomitant]
  2. REMICADE [Suspect]
     Indication: CROHN^S DISEASE
     Route: 042
  3. HUMIRA [Suspect]
     Indication: PRODUCT USED FOR UNKNOWN INDICATION
     Route: 065
     Dates: start: 20110425
  4. METHOTREXATE [Suspect]
     Indication: PRODUCT USED FOR UNKNOWN INDICATION
  5. OMEPRAZOLE [Concomitant]
     Route: 048
  6. MULTIVITAMINS WITH IRON [Concomitant]
     Route: 048
  7. NORCO [Concomitant]
  8. PREVACID [Concomitant]
  9. CIPROFLOXACIN [Concomitant]
  10. MELATONIN [Concomitant]
  11. ZOFRAN [Concomitant]
  12. IVIG [Concomitant]
  13. HYDROCODONE [Concomitant]
  14. IRON DEXTRAN [Concomitant]
  15. PREDNISONE [Concomitant]
     Route: 065
  16. LANSOPRAZOLE [Concomitant]
     Route: 065
  17. PREDNISONE [Concomitant]
  18. CIPROFLOXACIN [Concomitant]
  19. MELATONIN [Concomitant]

REACTIONS (2)
  - Crohn^s disease [Recovered/Resolved]
  - Immune thrombocytopenic purpura [Not Recovered/Not Resolved]
